FAERS Safety Report 21342152 (Version 1)
Quarter: 2022Q3

REPORT INFORMATION
  Report Type: Report from Study
  Country: US (occurrence: US)
  Receive Date: 20220916
  Receipt Date: 20220916
  Transmission Date: 20221026
  Serious: Yes (Other)
  Sender: FDA-Public Use
  Company Number: US-BRISTOL-MYERS SQUIBB COMPANY-2022-104979

PATIENT
  Age: 73 Year
  Sex: Male
  Weight: 73.03 kg

DRUGS (3)
  1. REVLIMID [Suspect]
     Active Substance: LENALIDOMIDE
     Indication: Plasma cell myeloma
     Route: 048
     Dates: start: 20210916, end: 20220823
  2. ASPIRIN [Concomitant]
     Active Substance: ASPIRIN
  3. NIVESTYM [FILGRASTIM] [Concomitant]

REACTIONS (1)
  - Urticaria [Unknown]
